FAERS Safety Report 21610508 (Version 2)
Quarter: 2022Q4

REPORT INFORMATION
  Report Type: Spontaneous
  Country: RU (occurrence: RU)
  Receive Date: 20221117
  Receipt Date: 20221220
  Transmission Date: 20230112
  Serious: Yes (Other)
  Sender: FDA-Public Use
  Company Number: RU-TEVA-2022-RU-2826180

PATIENT
  Sex: Male

DRUGS (2)
  1. CYCLOSPORINE [Suspect]
     Active Substance: CYCLOSPORINE
     Indication: Nephrotic syndrome
     Dosage: FOR 10 MONTHS
     Route: 065
  2. METHYLPREDNISOLONE [Suspect]
     Active Substance: METHYLPREDNISOLONE
     Indication: Nephrotic syndrome
     Route: 065

REACTIONS (6)
  - Drug ineffective [Unknown]
  - Growth retardation [Unknown]
  - Hypertension [Unknown]
  - Cardiomyopathy [Unknown]
  - Osteopenia [Unknown]
  - Toxicity to various agents [Unknown]
